FAERS Safety Report 17359234 (Version 10)
Quarter: 2022Q1

REPORT INFORMATION
  Report Type: Spontaneous
  Country: US (occurrence: US)
  Receive Date: 20200203
  Receipt Date: 20220210
  Transmission Date: 20220423
  Serious: No
  Sender: FDA-Public Use
  Company Number: US-DSJP-DSU-2020-103832

PATIENT
  Age: 62 Year
  Sex: Male

DRUGS (2)
  1. TURALIO [Suspect]
     Active Substance: PEXIDARTINIB HYDROCHLORIDE
     Indication: Synovitis
     Dosage: 200 MG, BID
     Route: 048
     Dates: start: 20200117
  2. TURALIO [Suspect]
     Active Substance: PEXIDARTINIB HYDROCHLORIDE
     Dosage: 400 MG, BID
     Route: 048

REACTIONS (14)
  - Pollakiuria [Not Recovered/Not Resolved]
  - Blood potassium increased [Recovered/Resolved]
  - Fatigue [Unknown]
  - Eye swelling [Recovered/Resolved]
  - Eye irritation [Recovered/Resolved]
  - Infection [Recovered/Resolved]
  - Photosensitivity reaction [Recovered/Resolved]
  - Joint swelling [Not Recovered/Not Resolved]
  - Nerve injury [Not Recovered/Not Resolved]
  - Fungal skin infection [Unknown]
  - Blood cholesterol increased [Unknown]
  - Product dose omission issue [Unknown]
  - Hyperlipidaemia [Unknown]
  - Adverse event [Unknown]

NARRATIVE: CASE EVENT DATE: 20200101
